FAERS Safety Report 4530685-0 (Version None)
Quarter: 2004Q4

REPORT INFORMATION
  Report Type: 
  Country: None (occurrence: None)
  Receive Date: 20041217
  Receipt Date: 20041201
  Transmission Date: 20050328
  Serious: Yes (Hospitalization)
  Sender: FDA-Public Use
  Company Number: CA-GLAXOSMITHKLINE-A0535639A

PATIENT
  Age: 52 Year
  Sex: Male

DRUGS (9)
  1. VALTREX [Suspect]
     Indication: ANTIVIRAL PROPHYLAXIS
     Dosage: 2G FOUR TIMES PER DAY
     Route: 048
     Dates: start: 20040910
  2. SPORANOX [Concomitant]
     Dosage: 200MG TWICE PER DAY
     Route: 048
     Dates: start: 20040907
  3. COLACE [Concomitant]
     Dosage: 200MG AT NIGHT
     Route: 048
     Dates: start: 20040917
  4. BACTRIM DS [Concomitant]
     Route: 048
     Dates: start: 20041006
  5. CYCLOSPORINE [Concomitant]
     Dosage: 50MG TWICE PER DAY
     Route: 048
     Dates: start: 20040912
  6. CELLCEPT [Concomitant]
     Dosage: 500MG PER DAY
     Route: 048
     Dates: start: 20040915
  7. MAGNESIUM [Concomitant]
     Route: 048
     Dates: start: 20040910
  8. URSO [Concomitant]
     Dosage: 250MG IN THE MORNING
     Dates: start: 20040908
  9. URSO [Concomitant]
     Dosage: 500MG AT NIGHT
     Dates: start: 20040908

REACTIONS (8)
  - ABNORMAL BEHAVIOUR [None]
  - ANXIETY [None]
  - CONFUSIONAL STATE [None]
  - CONVULSION [None]
  - FALL [None]
  - FOAMING AT MOUTH [None]
  - MANIA [None]
  - STARING [None]
